FAERS Safety Report 5238122-8 (Version None)
Quarter: 2007Q1

REPORT INFORMATION
  Report Type: 
  Country: None (occurrence: None)
  Receive Date: 20070215
  Receipt Date: 20070202
  Transmission Date: 20070707
  Serious: Yes (Hospitalization)
  Sender: FDA-Public Use
  Company Number: PHBS2007JP02279

PATIENT
  Age: 54 Year

DRUGS (1)
  1. LAMISIL [Suspect]
     Route: 048

REACTIONS (6)
  - ANOREXIA [None]
  - ARRHYTHMIA [None]
  - GENERAL PHYSICAL HEALTH DETERIORATION [None]
  - INSOMNIA [None]
  - OBESITY [None]
  - WEIGHT DECREASED [None]
